FAERS Safety Report 8719478 (Version 2)
Quarter: 2013Q3

REPORT INFORMATION
  Report Type: Spontaneous
  Country: US (occurrence: US)
  Receive Date: 20120813
  Receipt Date: 20130822
  Transmission Date: 20140515
  Serious: Yes (Life-Threatening, Congenital Anomaly, Other)
  Sender: FDA-Public Use
  Company Number: US-ELI_LILLY_AND_COMPANY-US201208000771

PATIENT
  Sex: 0

DRUGS (2)
  1. PROZAC [Suspect]
     Dosage: UNK UNK, UNKNOWN
     Route: 064
  2. PROZAC [Suspect]
     Dosage: UNK UNK, UNKNOWN
     Route: 064

REACTIONS (9)
  - Truncus arteriosus persistent [Unknown]
  - Patent ductus arteriosus [Unknown]
  - Double outlet right ventricle [Unknown]
  - Ventricular septal defect [Unknown]
  - Atrial septal defect [Unknown]
  - Pulmonary valve stenosis [Unknown]
  - Cardiac failure congestive [Unknown]
  - Thrombocytopenia [Unknown]
  - Foetal exposure during pregnancy [Recovered/Resolved]
